FAERS Safety Report 24908195 (Version 1)
Quarter: 2025Q1

REPORT INFORMATION
  Report Type: Spontaneous
  Country: JP (occurrence: JP)
  Receive Date: 20250131
  Receipt Date: 20250131
  Transmission Date: 20250409
  Serious: Yes (Other)
  Sender: ORGANON
  Company Number: JP-ORGANON-O2501JPN003282

PATIENT
  Age: 47 Year
  Sex: Male

DRUGS (1)
  1. BONALON [Suspect]
     Active Substance: ALENDRONATE SODIUM
     Dosage: 35 MILLIGRAM PER WEEK (QW)
     Route: 048
     Dates: start: 202303, end: 202305

REACTIONS (1)
  - Drug-induced liver injury [Unknown]
